FAERS Safety Report 4890972-3 (Version None)
Quarter: 2006Q1

REPORT INFORMATION
  Report Type: 
  Country: None (occurrence: None)
  Receive Date: 20060125
  Receipt Date: 20060116
  Transmission Date: 20060701
  Serious: Yes (Hospitalization)
  Sender: FDA-Public Use
  Company Number: FR-AVENTIS-200610169FR

PATIENT
  Age: 48 Year
  Sex: Female

DRUGS (7)
  1. FLAGYL [Suspect]
     Route: 048
     Dates: start: 20051111, end: 20051123
  2. FLAGYL [Suspect]
     Route: 048
     Dates: start: 20051124, end: 20051220
  3. AMBISOME [Concomitant]
  4. ABELCET [Concomitant]
  5. NEORAL [Concomitant]
  6. ANTIFUNGALS FOR SYSTEMIC USE [Concomitant]
     Route: 048
     Dates: start: 20051210, end: 20051223
  7. ANTIFUNGALS FOR SYSTEMIC USE [Concomitant]
     Route: 048
     Dates: start: 20051224

REACTIONS (2)
  - HYPERREFLEXIA [None]
  - PERIPHERAL MOTOR NEUROPATHY [None]
